FAERS Safety Report 17042027 (Version 2)
Quarter: 2019Q4

REPORT INFORMATION
  Report Type: Spontaneous
  Country: US (occurrence: US)
  Receive Date: 20191118
  Receipt Date: 20191230
  Transmission Date: 20200122
  Serious: Yes (Hospitalization)
  Sender: FDA-Public Use
  Company Number: US-GLENMARK PHARMACEUTICALS-2019GMK044279

PATIENT

DRUGS (3)
  1. ALPRAZOLAM. [Concomitant]
     Active Substance: ALPRAZOLAM
     Indication: PRODUCT USED FOR UNKNOWN INDICATION
     Dosage: UNK
     Route: 048
     Dates: start: 2019, end: 2019
  2. ATOVAQUONE ORAL SUSPENSION 750 MG/5 ML [Suspect]
     Active Substance: ATOVAQUONE
     Indication: BABESIOSIS
  3. ATOVAQUONE ORAL SUSPENSION 750 MG/5 ML [Suspect]
     Active Substance: ATOVAQUONE
     Indication: LYME DISEASE
     Dosage: 2 TEASPOONS TWICE DAILY EVERY OTHER DAY
     Route: 048
     Dates: start: 201910, end: 20191030

REACTIONS (3)
  - Anxiety [Unknown]
  - Product use in unapproved indication [Unknown]
  - Panic attack [Unknown]

NARRATIVE: CASE EVENT DATE: 2019
